FAERS Safety Report 19866991 (Version 5)
Quarter: 2021Q4

REPORT INFORMATION
  Report Type: Report from Study
  Country: DE (occurrence: DE)
  Receive Date: 20210922
  Receipt Date: 20211223
  Transmission Date: 20220303
  Serious: Yes (Hospitalization)
  Sender: FDA-Public Use
  Company Number: DE-JNJFOC-20210931667

PATIENT
  Age: 49 Year
  Sex: Female
  Weight: 84 kg

DRUGS (12)
  1. SIMPONI [Suspect]
     Active Substance: GOLIMUMAB
     Indication: Colitis ulcerative
     Dosage: MOST RECENT DOSE 9-SEP-2021
     Route: 058
     Dates: start: 20190312
  2. ASACOL [Concomitant]
     Active Substance: MESALAMINE
     Dates: start: 20210526
  3. CHOLECALCIFEROL [Concomitant]
     Active Substance: CHOLECALCIFEROL
     Indication: Vitamin D deficiency
     Dates: start: 20170926
  4. SOTALOL [Concomitant]
     Active Substance: SOTALOL
     Indication: Tachycardia paroxysmal
  5. METAMIZOLE [Concomitant]
     Active Substance: METAMIZOLE
     Dates: start: 20190108, end: 20200827
  6. METAMIZOLE [Concomitant]
     Active Substance: METAMIZOLE
     Dates: start: 20200828
  7. LEVOTHYROXINE [Concomitant]
     Active Substance: LEVOTHYROXINE
     Indication: Hypothyroidism
  8. AMINOSALICYLIC ACID [Concomitant]
     Active Substance: AMINOSALICYLIC ACID
     Dates: start: 20190402, end: 20200604
  9. AMINOSALICYLIC ACID [Concomitant]
     Active Substance: AMINOSALICYLIC ACID
     Dates: start: 20181002, end: 20190401
  10. AMINOSALICYLIC ACID [Concomitant]
     Active Substance: AMINOSALICYLIC ACID
     Dates: start: 20200605, end: 202010
  11. AMINOSALICYLIC ACID [Concomitant]
     Active Substance: AMINOSALICYLIC ACID
     Dates: start: 202010, end: 20210525
  12. AMINOSALICYLIC ACID [Concomitant]
     Active Substance: AMINOSALICYLIC ACID
     Dates: start: 20210526

REACTIONS (1)
  - COVID-19 [Recovered/Resolved]

NARRATIVE: CASE EVENT DATE: 20210909
